FAERS Safety Report 20071151 (Version 1)
Quarter: 2021Q4

REPORT INFORMATION
  Report Type: Spontaneous
  Country: US (occurrence: KW)
  Receive Date: 20211115
  Receipt Date: 20211115
  Transmission Date: 20220303
  Serious: No
  Sender: FDA-Public Use
  Company Number: US-BIOGEN-2021BI01067115

PATIENT
  Sex: Female

DRUGS (1)
  1. SPINRAZA [Suspect]
     Active Substance: NUSINERSEN
     Indication: Spinal muscular atrophy
     Route: 065

REACTIONS (1)
  - General physical health deterioration [Unknown]
